FAERS Safety Report 6740548-8 (Version None)
Quarter: 2010Q2

REPORT INFORMATION
  Report Type: 
  Country: None (occurrence: None)
  Receive Date: 20100525
  Receipt Date: 20100510
  Transmission Date: 20101027
  Serious: Yes (Other)
  Sender: FDA-Public Use
  Company Number: US-ROCHE-704729

PATIENT
  Sex: Female
  Weight: 54.5 kg

DRUGS (3)
  1. BONIVA [Suspect]
     Indication: OSTEOPENIA
     Dosage: THERAPY DURATION:ONE AND A HALF TO 2 YEARS
     Route: 048
     Dates: start: 20080101, end: 20100301
  2. ZOCOR [Concomitant]
  3. FLECAINIDE ACETATE [Concomitant]

REACTIONS (4)
  - EAR INFECTION [None]
  - INTERVERTEBRAL DISC DEGENERATION [None]
  - SCOLIOSIS [None]
  - TEMPOROMANDIBULAR JOINT SYNDROME [None]
